FAERS Safety Report 23357111 (Version 1)
Quarter: 2023Q4

REPORT INFORMATION
  Report Type: Spontaneous
  Country: US (occurrence: None)
  Receive Date: 20231230
  Receipt Date: 20231230
  Transmission Date: 20240110
  Serious: Yes (Hospitalization)
  Sender: FDA-Public Use
  Company Number: None

PATIENT
  Age: 47 Year
  Sex: Female

DRUGS (1)
  1. PACLITAXEL [Suspect]
     Active Substance: PACLITAXEL

REACTIONS (6)
  - Dyspnoea [None]
  - Infusion related reaction [None]
  - Rash [None]
  - Lactic acidosis [None]
  - Hypertransaminasaemia [None]
  - Hypotension [None]

NARRATIVE: CASE EVENT DATE: 20231111
